FAERS Safety Report 4951630-X (Version None)
Quarter: 2006Q1

REPORT INFORMATION
  Report Type: 
  Country: None (occurrence: None)
  Receive Date: 20060323
  Receipt Date: 20050505
  Transmission Date: 20060701
  Serious: Yes (Death, Hospitalization)
  Sender: FDA-Public Use
  Company Number: ZW-GILEAD-2005-0008316

PATIENT
  Sex: Female

DRUGS (4)
  1. TENOFOVIR DISOPROXIL FUMARATE [Suspect]
     Indication: HIV INFECTION
  2. TENOFOVIR DISOPROXIL FUMARATE [Suspect]
     Route: 048
  3. CO-TRIMOXAZOLE [Suspect]
  4. CBV [Concomitant]
     Indication: HIV INFECTION

REACTIONS (4)
  - GASTROENTERITIS [None]
  - HAEMATEMESIS [None]
  - MENINGITIS [None]
  - RENAL FAILURE [None]
